FAERS Safety Report 7655232-6 (Version None)
Quarter: 2011Q3

REPORT INFORMATION
  Report Type: 
  Country: None (occurrence: None)
  Receive Date: 20110804
  Receipt Date: 20110726
  Transmission Date: 20111222
  Serious: Yes (Hospitalization, Other)
  Sender: FDA-Public Use
  Company Number: BR-US-EMD SERONO, INC.-7073377

PATIENT
  Sex: Female

DRUGS (8)
  1. REBIF [Suspect]
     Indication: RELAPSING-REMITTING MULTIPLE SCLEROSIS
  2. LEVOTHYROXINE SODIUM [Concomitant]
  3. TEGRETOL [Concomitant]
  4. PHENOBARBITAL TAB [Concomitant]
     Indication: EPILEPSY
  5. CAPTOPRIL [Concomitant]
  6. PHENYTOIN [Concomitant]
  7. CLONAZEPAM [Concomitant]
  8. BALOFEN [Concomitant]

REACTIONS (5)
  - CONDITION AGGRAVATED [None]
  - INTERVERTEBRAL DISC DISORDER [None]
  - SPINAL DEFORMITY [None]
  - EPILEPSY [None]
  - URINARY TRACT INFECTION [None]
